FAERS Safety Report 14432187 (Version 2)
Quarter: 2018Q3

REPORT INFORMATION
  Report Type: Report from Study
  Country: JP (occurrence: JP)
  Receive Date: 20180124
  Receipt Date: 20180731
  Transmission Date: 20181010
  Serious: Yes (Death, Life-Threatening)
  Sender: FDA-Public Use
  Company Number: JP-DSJP-DSJ-2018-102319

PATIENT

DRUGS (8)
  1. PACLITAXEL. [Concomitant]
     Active Substance: PACLITAXEL
     Dosage: 130MG/DAY ( ONE REPOSE AFTER 3 TIMES)
     Route: 042
     Dates: start: 20151221, end: 20160404
  2. AQUPLA [Concomitant]
     Active Substance: NEDAPLATIN
     Dosage: 70 MG/DAY, ONCE EVERY 4 WK, D1
     Route: 042
     Dates: start: 20160420, end: 20160619
  3. 5?FU                               /00098801/ [Concomitant]
     Active Substance: FLUOROURACIL
     Dosage: 600 MG/DAY, ONCE EVERY 4 WK, D1?5
     Route: 042
     Dates: start: 20160420, end: 20160619
  4. EDOXABAN [Suspect]
     Active Substance: EDOXABAN TOSYLATE
     Indication: DEEP VEIN THROMBOSIS
     Dosage: 30 MG, QD
     Route: 048
     Dates: start: 20151225, end: 20160530
  5. LANSOPRAZOLE. [Concomitant]
     Active Substance: LANSOPRAZOLE
     Dosage: 15MG/DAY
     Route: 048
     Dates: end: 20160804
  6. ENEVO [Concomitant]
     Dosage: 1DF/DAY
     Route: 050
     Dates: start: 20160108, end: 20160804
  7. G LASTA [Concomitant]
     Active Substance: PEGFILGRASTIM
     Dosage: 3.6MG/DAY
     Route: 058
     Dates: start: 20160105, end: 20160404
  8. FENTOS [Concomitant]
     Active Substance: FENTANYL
     Dosage: 2MG/DAY
     Route: 050
     Dates: end: 20160808

REACTIONS (4)
  - Oesophageal carcinoma [Fatal]
  - Disseminated intravascular coagulation [Not Recovered/Not Resolved]
  - Haematuria [Recovered/Resolved]
  - Delirium [Not Recovered/Not Resolved]

NARRATIVE: CASE EVENT DATE: 20160526
